FAERS Safety Report 21090525 (Version 4)
Quarter: 2022Q3

REPORT INFORMATION
  Report Type: Report from Study
  Country: US (occurrence: US)
  Receive Date: 20220715
  Receipt Date: 20220829
  Transmission Date: 20221027
  Serious: Yes (Death, Hospitalization, Other)
  Sender: FDA-Public Use
  Company Number: US-BoehringerIngelheim-2020-BI-024383

PATIENT
  Age: 79 Year
  Sex: Male

DRUGS (1)
  1. OFEV [Suspect]
     Active Substance: NINTEDANIB
     Indication: Idiopathic pulmonary fibrosis
     Dosage: LOT NUMBERS: 000405,002759,8712,3782,100787,102105,102164,102377A
     Route: 048
     Dates: start: 20200325

REACTIONS (12)
  - Death [Fatal]
  - Dyspnoea [Unknown]
  - Haemorrhagic stroke [Unknown]
  - Cerebral haemorrhage [Unknown]
  - Atrial fibrillation [Recovered/Resolved]
  - Pneumonia [Unknown]
  - Diarrhoea [Unknown]
  - Pneumonitis [Unknown]
  - Abdominal pain upper [Unknown]
  - Flatulence [Recovering/Resolving]
  - Vomiting [Unknown]
  - Diarrhoea [Recovered/Resolved]

NARRATIVE: CASE EVENT DATE: 20220310
